FAERS Safety Report 6716002-6 (Version None)
Quarter: 2010Q2

REPORT INFORMATION
  Report Type: 
  Country: None (occurrence: None)
  Receive Date: 20100507
  Receipt Date: 20100503
  Transmission Date: 20101027
  Serious: Yes (Other)
  Sender: FDA-Public Use
  Company Number: US-RB-006517-10

PATIENT
  Sex: Female

DRUGS (3)
  1. SUBOXONE [Suspect]
     Route: 060
  2. XANAX [Concomitant]
     Indication: ANXIETY
     Route: 065
     Dates: end: 20100101
  3. XANAX [Concomitant]
     Route: 065
     Dates: start: 20100101

REACTIONS (4)
  - AMNESIA [None]
  - COLD SWEAT [None]
  - CONVULSION [None]
  - TREMOR [None]
